FAERS Safety Report 9166406 (Version 1)
Quarter: 2013Q1

REPORT INFORMATION
  Report Type: Spontaneous
  Country: US (occurrence: US)
  Receive Date: 20130315
  Receipt Date: 20130315
  Transmission Date: 20140127
  Serious: Yes (Hospitalization, Other)
  Sender: FDA-Public Use
  Company Number: PHEH2013US005822

PATIENT
  Sex: Male

DRUGS (1)
  1. MYFORTIC [Suspect]
     Indication: RENAL AND PANCREAS TRANSPLANT
     Dosage: 360 MG, BID
     Route: 048

REACTIONS (11)
  - Blood glucose decreased [Unknown]
  - Neuropathy peripheral [Unknown]
  - Infected skin ulcer [Unknown]
  - Asthma [Unknown]
  - Eye haemorrhage [Unknown]
  - Dizziness [Unknown]
  - Balance disorder [Unknown]
  - Disorientation [Unknown]
  - Gastrointestinal disorder [Unknown]
  - Blood cholesterol increased [Unknown]
  - Anaemia [Unknown]
